FAERS Safety Report 6057769-2 (Version None)
Quarter: 2009Q1

REPORT INFORMATION
  Report Type: 
  Country: None (occurrence: None)
  Receive Date: 20090129
  Receipt Date: 20090126
  Transmission Date: 20090719
  Serious: Yes (Other)
  Sender: FDA-Public Use
  Company Number: PHHY2009BR02887

PATIENT
  Age: 91 Year
  Sex: Female
  Weight: 85 kg

DRUGS (8)
  1. GALVUS MET COMBIPACK [Suspect]
     Indication: TYPE 2 DIABETES MELLITUS
     Dosage: 100/850 MG (1 TAB OF VILDAGLIPTIN PLUS 1 TAB OF METFORMIN IN MORNING AND 1 TAB OF METFORMIN AT NIGHT
     Route: 048
  2. GALVUS MET COMBIPACK [Suspect]
     Dosage: 850/50MG, ONE TABLET OF EACH ACTIVE COMPOUND IN THE MORNING AND AT NIGHT)
     Route: 048
  3. ENALAPRIL MALEATE [Concomitant]
     Indication: HYPERTENSION
     Dosage: ONE TABLET DAILY
     Route: 048
     Dates: start: 20080101
  4. INDAPEN                                 /TUR/ [Concomitant]
     Dosage: 1.5 MG, 1 TABLET DAILY
     Route: 048
  5. AMLODIPINE BESYLATE [Concomitant]
     Indication: HYPERTENSION
     Dosage: 1 TABLET DAILY
     Route: 048
  6. ALPRAZOLAM [Concomitant]
     Indication: TENSION
     Dosage: 1 MG, HALF TABLET DAILY
     Route: 048
  7. ALPRAZOLAM [Concomitant]
     Indication: NERVOUSNESS
  8. ALPRAZOLAM [Concomitant]
     Indication: DEPRESSION

REACTIONS (3)
  - BLOOD GLUCOSE INCREASED [None]
  - DIARRHOEA [None]
  - DIZZINESS [None]
